FAERS Safety Report 8839191 (Version 1)
Quarter: 2012Q4

REPORT INFORMATION
  Report Type: 
  Country: CN (occurrence: CN)
  Receive Date: 20121015
  Receipt Date: 20121015
  Transmission Date: 20130627
  Serious: Yes (Death, Other)
  Sender: FDA-Public Use
  Company Number: CN-JNJFOC-20121006464

PATIENT
  Age: 14 Year
  Sex: Female

DRUGS (11)
  1. INFLIXIMAB, RECOMBINANT [Suspect]
     Indication: GRAFT VERSUS HOST DISEASE
     Route: 042
  2. STEROIDS NOS [Suspect]
     Indication: GRAFT VERSUS HOST DISEASE
     Dosage: 1-2 mg/kg/day
     Route: 065
  3. UNSPECIFIED INGREDIENT [Suspect]
     Indication: PRODUCT USED FOR UNKNOWN INDICATION
     Route: 065
  4. CHLORPHENIRAMINE [Concomitant]
     Indication: PREMEDICATION
     Dosage: 0.1-0.2 mg/kg
     Route: 042
  5. BUSULPHAN [Concomitant]
     Route: 065
  6. CYCLOPHOSPHAMIDE [Concomitant]
     Route: 065
  7. ANTITHYMOCYTE GLOBULIN [Concomitant]
     Route: 065
  8. PARACETAMOL [Concomitant]
     Indication: PREMEDICATION
     Dosage: 15-20 mg/kg
     Route: 048
  9. COTRIMOXAZOLE [Concomitant]
     Route: 065
  10. FLUCONAZOLE [Concomitant]
     Route: 065
  11. ACYCLOVIR [Concomitant]
     Route: 065

REACTIONS (3)
  - Graft versus host disease [Fatal]
  - Adenovirus infection [Unknown]
  - Drug effect incomplete [Unknown]
